FAERS Safety Report 5105296-9 (Version None)
Quarter: 2006Q3

REPORT INFORMATION
  Report Type: 
  Country: None (occurrence: None)
  Receive Date: 20060911
  Receipt Date: 20060828
  Transmission Date: 20061208
  Serious: Yes (Other)
  Sender: FDA-Public Use
  Company Number: 2006-07-1878

PATIENT
  Age: 5 Year
  Sex: Male

DRUGS (1)
  1. CLARITIN REDITABS [Suspect]
     Indication: MULTIPLE ALLERGIES
     Dosage: 10 MG; QD; PO
     Route: 048
     Dates: start: 20060301, end: 20060601

REACTIONS (2)
  - AGGRESSION [None]
  - MOOD SWINGS [None]
